FAERS Safety Report 4748501-0 (Version None)
Quarter: 2005Q3

REPORT INFORMATION
  Report Type: 
  Country: None (occurrence: None)
  Receive Date: 20050817
  Receipt Date: 20050810
  Transmission Date: 20060218
  Serious: Yes (Other)
  Sender: FDA-Public Use
  Company Number: 2005113743

PATIENT
  Age: 68 Year
  Sex: Male
  Weight: 98.4306 kg

DRUGS (2)
  1. LIPITOR [Suspect]
     Indication: BLOOD CHOLESTEROL INCREASED
     Dosage: 10 MG (10 MG, 1 IN 1 D)
  2. CARDIAC THERAPY (CARDIAC THERAPY) [Concomitant]

REACTIONS (7)
  - ADVERSE DRUG REACTION [None]
  - BLINDNESS UNILATERAL [None]
  - CATARACT [None]
  - HYPOACUSIS [None]
  - IMPAIRED HEALING [None]
  - JAW FRACTURE [None]
  - NASAL OPERATION [None]
